FAERS Safety Report 7331460-4 (Version None)
Quarter: 2011Q1

REPORT INFORMATION
  Report Type: 
  Country: None (occurrence: None)
  Receive Date: 20110228
  Receipt Date: 20110228
  Transmission Date: 20110831
  Serious: Yes (Other)
  Sender: FDA-Public Use
  Company Number: None

PATIENT
  Age: 65 Year
  Sex: Male
  Weight: 81.6475 kg

DRUGS (1)
  1. SIMVASTATIN [Suspect]
     Indication: HYPERCHOLESTEROLAEMIA
     Dosage: 20 MG 1X  DAILY ORAL
     Route: 048
     Dates: start: 20070401, end: 20101101

REACTIONS (3)
  - REFUSAL OF TREATMENT BY PATIENT [None]
  - MOBILITY DECREASED [None]
  - HYPOTHYROIDISM [None]
